FAERS Safety Report 12381528 (Version 2)
Quarter: 2016Q2

REPORT INFORMATION
  Report Type: Spontaneous
  Country: IT (occurrence: IT)
  Receive Date: 20160518
  Receipt Date: 20160525
  Transmission Date: 20160815
  Serious: Yes (Other)
  Sender: FDA-Public Use
  Company Number: PHHY2016IT065311

PATIENT
  Age: 14 Year
  Sex: Female
  Weight: 75 kg

DRUGS (8)
  1. PARACETAMOL [Suspect]
     Active Substance: ACETAMINOPHEN
     Indication: INTENTIONAL SELF-INJURY
     Dosage: 14 G, ONCE/SINGLE
     Route: 048
     Dates: start: 20160411, end: 20160411
  2. ARVENUM [Suspect]
     Active Substance: DIOSMIN
     Dosage: UNK
     Route: 048
     Dates: start: 20160411, end: 20160411
  3. OMEPRAZOLE. [Suspect]
     Active Substance: OMEPRAZOLE
     Indication: INTENTIONAL SELF-INJURY
     Route: 048
     Dates: start: 20160411, end: 20160411
  4. CEFIXIME. [Suspect]
     Active Substance: CEFIXIME
     Indication: INTENTIONAL SELF-INJURY
     Dosage: UNK
     Route: 048
     Dates: start: 20160411, end: 20160411
  5. LEVOFLOXACIN. [Suspect]
     Active Substance: LEVOFLOXACIN
     Indication: INTENTIONAL SELF-INJURY
     Dosage: 1000 MG, ONCE/SINGLE
     Route: 048
     Dates: start: 20160411, end: 20160411
  6. CETIRIZINE [Suspect]
     Active Substance: CETIRIZINE HYDROCHLORIDE
     Indication: INTENTIONAL SELF-INJURY
     Dosage: 90 MG, ONCE/SINGLE
     Route: 048
     Dates: start: 20160411, end: 20160411
  7. VERMOX [Suspect]
     Active Substance: MEBENDAZOLE
     Indication: INTENTIONAL SELF-INJURY
     Dosage: UNK
     Route: 048
     Dates: start: 20160411, end: 20160411
  8. OKI [Suspect]
     Active Substance: KETOPROFEN LYSINE
     Indication: INTENTIONAL SELF-INJURY
     Dosage: 20 DF, ONCE/SINGLE
     Route: 048
     Dates: start: 20160411, end: 20160411

REACTIONS (7)
  - Somnolence [Unknown]
  - Drug abuse [Unknown]
  - Intentional self-injury [Unknown]
  - Abdominal pain [Unknown]
  - Asthenia [Unknown]
  - Vertigo [Unknown]
  - Poisoning [Unknown]

NARRATIVE: CASE EVENT DATE: 20160411
